FAERS Safety Report 7594000-0 (Version None)
Quarter: 2011Q3

REPORT INFORMATION
  Report Type: 
  Country: None (occurrence: None)
  Receive Date: 20110706
  Receipt Date: 20110509
  Transmission Date: 20111222
  Serious: Yes (Hospitalization)
  Sender: FDA-Public Use
  Company Number: US-JNJFOC-20110504257

PATIENT
  Age: 13 Month
  Sex: Female
  Weight: 9.53 kg

DRUGS (1)
  1. VISINE-A [Suspect]
     Indication: ACCIDENTAL EXPOSURE
     Dosage: ONE TO TWO CC'S
     Route: 048
     Dates: start: 20110506, end: 20110506

REACTIONS (7)
  - NERVOUS SYSTEM DISORDER [None]
  - ACCIDENTAL DRUG INTAKE BY CHILD [None]
  - PRODUCT OUTER PACKAGING ISSUE [None]
  - ACCIDENTAL EXPOSURE [None]
  - SOMNOLENCE [None]
  - PRODUCT QUALITY ISSUE [None]
  - EYELID PTOSIS [None]
